FAERS Safety Report 10285969 (Version 2)
Quarter: 2014Q3

REPORT INFORMATION
  Report Type: Spontaneous
  Country: AT (occurrence: AT)
  Receive Date: 20140709
  Receipt Date: 20140902
  Transmission Date: 20150326
  Serious: Yes (Hospitalization)
  Sender: FDA-Public Use
  Company Number: PHHY2014AT084163

PATIENT
  Age: 38 Year
  Sex: Male
  Weight: 80 kg

DRUGS (1)
  1. TASIGNA [Suspect]
     Active Substance: NILOTINIB
     Indication: CHRONIC MYELOID LEUKAEMIA
     Dosage: 200 MG, PER DAY
     Route: 048
     Dates: start: 20081222

REACTIONS (6)
  - Local swelling [Recovered/Resolved]
  - Second primary malignancy [Recovered/Resolved]
  - Myalgia [Unknown]
  - Fatigue [Unknown]
  - Testis cancer [Recovered/Resolved]
  - Rhabdomyolysis [Unknown]

NARRATIVE: CASE EVENT DATE: 20140522
